FAERS Safety Report 25773454 (Version 1)
Quarter: 2025Q3

REPORT INFORMATION
  Report Type: Spontaneous
  Country: CH (occurrence: CH)
  Receive Date: 20250908
  Receipt Date: 20250908
  Transmission Date: 20251021
  Serious: Yes (Death, Hospitalization)
  Sender: TEVA
  Company Number: None

PATIENT
  Age: 33 Year
  Sex: Male

DRUGS (13)
  1. LAMOTRIGINE [Suspect]
     Active Substance: LAMOTRIGINE
     Indication: Product used for unknown indication
     Dosage: AT EVENING
     Route: 048
     Dates: start: 20250721, end: 20250726
  2. LAMOTRIGINE [Suspect]
     Active Substance: LAMOTRIGINE
     Indication: Product used for unknown indication
     Dosage: MORNING, LAMOTRIN MEPHA
     Route: 048
     Dates: start: 20250721, end: 20250726
  3. Amlodipin Valsartan Zentiva [Concomitant]
     Indication: Product used for unknown indication
     Dosage: AMLODIPINE VALSARTAN ZENTIVA 5/80 SINCE AT LEAST 2025-06-18
     Route: 048
     Dates: start: 20250618, end: 20250728
  4. TEGRETOL [Concomitant]
     Active Substance: CARBAMAZEPINE
     Indication: Product used for unknown indication
     Dosage: 1-0-1.5 SINCE AT LEAST 2025-06-18
     Route: 048
     Dates: start: 20250618, end: 20250728
  5. LORAZEPAM [Concomitant]
     Active Substance: LORAZEPAM
     Indication: Product used for unknown indication
     Route: 065
     Dates: start: 20250618
  6. CYPROTERONE ACETATE [Concomitant]
     Active Substance: CYPROTERONE ACETATE
     Indication: Product used for unknown indication
     Dosage: 2-2-2 SINCE AT LEAST 2025-06-18
     Route: 048
  7. CODEINE PHOSPHATE\GUAIFENESIN [Concomitant]
     Active Substance: CODEINE PHOSPHATE\GUAIFENESIN
     Indication: Product used for unknown indication
     Route: 065
     Dates: start: 20250618
  8. ZOLOFT [Concomitant]
     Active Substance: SERTRALINE HYDROCHLORIDE
     Indication: Product used for unknown indication
     Dosage: 1-0-0 SINCE AT LEAST 2025-06-18
     Route: 048
     Dates: start: 20250618, end: 20250728
  9. CALCIUM\CHOLECALCIFEROL [Concomitant]
     Active Substance: CALCIUM\CHOLECALCIFEROL
     Indication: Product used for unknown indication
     Dosage: 1000 MG/880 IU P.O. 1-0-0 SINCE AT LEAST 2025-06-18
     Route: 048
     Dates: start: 20250618
  10. VALPROATE SODIUM [Suspect]
     Active Substance: VALPROATE SODIUM
     Indication: Product used for unknown indication
     Dosage: 2-0-3 SINCE AT LEAST 2025-06-18 (DOSAGE SCHEDULE), ORFIRIL LONG
     Route: 048
     Dates: start: 20250618, end: 20250728
  11. DAFALGAN [Concomitant]
     Active Substance: ACETAMINOPHEN
     Indication: Product used for unknown indication
     Route: 065
  12. XANAX [Concomitant]
     Active Substance: ALPRAZOLAM
     Indication: Product used for unknown indication
     Route: 065
     Dates: start: 20250618
  13. LIORESAL [Concomitant]
     Active Substance: BACLOFEN
     Indication: Product used for unknown indication
     Dosage: 1.5-1.5-1.5 SINCE AT LEAST 2025-06-18
     Route: 048
     Dates: start: 20250618, end: 20250728

REACTIONS (1)
  - Toxic epidermal necrolysis [Fatal]

NARRATIVE: CASE EVENT DATE: 20250726
